FAERS Safety Report 7156434-8 (Version None)
Quarter: 2010Q4

REPORT INFORMATION
  Report Type: 
  Country: None (occurrence: None)
  Receive Date: 20101214
  Receipt Date: 20101208
  Transmission Date: 20110411
  Serious: Yes (Hospitalization, Other)
  Sender: FDA-Public Use
  Company Number: US-ROCHE-747372

PATIENT
  Sex: Female

DRUGS (4)
  1. VALIUM [Suspect]
     Route: 065
  2. OXYCONTIN [Suspect]
     Route: 065
  3. MORPHINE [Suspect]
     Route: 065
  4. OXYCODONE [Suspect]
     Route: 065

REACTIONS (4)
  - BONE NEOPLASM MALIGNANT [None]
  - BREAST CANCER [None]
  - DYSPNOEA [None]
  - PULMONARY OEDEMA [None]
